FAERS Safety Report 19382121 (Version 2)
Quarter: 2021Q2

REPORT INFORMATION
  Report Type: Report from Study
  Country: DE (occurrence: DE)
  Receive Date: 20210607
  Receipt Date: 20210623
  Transmission Date: 20210717
  Serious: Yes (Hospitalization)
  Sender: FDA-Public Use
  Company Number: NVSC2020DE341236

PATIENT
  Sex: Male
  Weight: 78 kg

DRUGS (11)
  1. TAMSULOSIN [Concomitant]
     Active Substance: TAMSULOSIN
     Indication: BENIGN PROSTATIC HYPERPLASIA
     Dosage: 0.4 MG, QD
     Route: 048
  2. COSENTYX [Suspect]
     Active Substance: SECUKINUMAB
     Dosage: 300 MG, ONCE/SINGLE (PRE?FILLED PEN)
     Route: 065
     Dates: start: 20201124, end: 20201124
  3. PREDNISOLONE. [Concomitant]
     Active Substance: PREDNISOLONE
     Indication: PSORIATIC ARTHROPATHY
     Dosage: 10 MG, QD
     Route: 048
     Dates: start: 20201215
  4. PANTOPRAZOLE [Concomitant]
     Active Substance: PANTOPRAZOLE
     Indication: PROPHYLAXIS
     Dosage: 40 MG, QD
     Route: 048
     Dates: start: 20201215
  5. COSENTYX [Suspect]
     Active Substance: SECUKINUMAB
     Indication: PSORIATIC ARTHROPATHY
     Dosage: 300 MG, ONCE/SINGLE  (PRE?FILLED PEN)
     Route: 065
     Dates: start: 20201117, end: 20201117
  6. COSENTYX [Suspect]
     Active Substance: SECUKINUMAB
     Dosage: 300 MG, ONCE/SINGLE  (PRE?FILLED PEN)
     Route: 065
     Dates: start: 20210114, end: 20210114
  7. COSENTYX [Suspect]
     Active Substance: SECUKINUMAB
     Dosage: 300 MG, ONCE/SINGLE  (PRE?FILLED PEN)
     Route: 065
     Dates: start: 20201208, end: 20201208
  8. COSENTYX [Suspect]
     Active Substance: SECUKINUMAB
     Dosage: 300 MG, ONCE/SINGLE  (PRE?FILLED PEN)
     Route: 065
     Dates: start: 20201214, end: 20201214
  9. COSENTYX [Suspect]
     Active Substance: SECUKINUMAB
     Dosage: 300 MG, ONCE/SINGLE  (PRE?FILLED PEN)
     Route: 065
     Dates: start: 20201201, end: 20201201
  10. COSENTYX [Suspect]
     Active Substance: SECUKINUMAB
     Dosage: 300 MG, ONCE/SINGLE (PRE?FILLED PEN)
     Route: 065
     Dates: start: 20210210, end: 20210210
  11. IBUPROFEN. [Concomitant]
     Active Substance: IBUPROFEN
     Indication: PAIN
     Dosage: 600 MG, PRN
     Route: 048
     Dates: start: 20041125

REACTIONS (8)
  - Breast cancer stage I [Recovering/Resolving]
  - Tremor [Unknown]
  - Breast pain [Unknown]
  - Arthralgia [Unknown]
  - Dysphagia [Unknown]
  - Gynaecomastia [Unknown]
  - Retracted nipple [Unknown]
  - Breast mass [Not Recovered/Not Resolved]

NARRATIVE: CASE EVENT DATE: 20201215
